FAERS Safety Report 6297626-X (Version None)
Quarter: 2009Q3

REPORT INFORMATION
  Report Type: 
  Country: None (occurrence: None)
  Receive Date: 20090804
  Receipt Date: 20090804
  Transmission Date: 20100115
  Serious: Yes (Hospitalization)
  Sender: FDA-Public Use
  Company Number: None

PATIENT
  Sex: Male
  Weight: 94.3482 kg

DRUGS (1)
  1. SPIRIVA [Suspect]
     Indication: CHRONIC OBSTRUCTIVE PULMONARY DISEASE
     Dosage: 1-CAPSULE 1X DAILY INHALE
     Route: 055
     Dates: start: 20071101, end: 20090301

REACTIONS (1)
  - RESPIRATORY TRACT INFECTION [None]
